FAERS Safety Report 6156773-3 (Version None)
Quarter: 2009Q2

REPORT INFORMATION
  Report Type: 
  Country: None (occurrence: None)
  Receive Date: 20090416
  Receipt Date: 20090407
  Transmission Date: 20091009
  Serious: Yes (Other)
  Sender: FDA-Public Use
  Company Number: PHHY2009GB03066

PATIENT
  Sex: Male

DRUGS (2)
  1. CLOZARIL [Suspect]
     Indication: SCHIZOPHRENIA
     Dosage: 400 MG, DAILY
     Route: 048
     Dates: start: 20050121
  2. CLOZARIL [Suspect]
     Dosage: 400 MG, BID

REACTIONS (3)
  - DRUG ADMINISTRATION ERROR [None]
  - DYSARTHRIA [None]
  - GAIT DISTURBANCE [None]
